FAERS Safety Report 7819004-1 (Version None)
Quarter: 2011Q4

REPORT INFORMATION
  Report Type: 
  Country: None (occurrence: None)
  Receive Date: 20111018
  Receipt Date: 20111007
  Transmission Date: 20120403
  Serious: Yes (Other)
  Sender: FDA-Public Use
  Company Number: DK-JNJFOC-20110704648

PATIENT
  Sex: Male
  Weight: 76 kg

DRUGS (7)
  1. PREDNISOLONE [Suspect]
     Indication: INFLAMMATION
     Route: 065
  2. REMICADE [Suspect]
     Route: 042
     Dates: start: 20080404, end: 20100127
  3. REMICADE [Suspect]
     Indication: RHEUMATOID ARTHRITIS
     Route: 042
  4. METHOTREXATE [Suspect]
     Indication: RHEUMATOID ARTHRITIS
     Route: 048
     Dates: start: 20011108
  5. PINEX [Concomitant]
     Indication: PAIN
     Route: 065
  6. FOLIMET [Concomitant]
     Route: 065
     Dates: start: 20100330
  7. CALCIUM CARBONATE [Concomitant]
     Route: 065

REACTIONS (1)
  - SQUAMOUS CELL CARCINOMA OF SKIN [None]
